FAERS Safety Report 4339447-0 (Version None)
Quarter: 2004Q2

REPORT INFORMATION
  Report Type: 
  Country: None (occurrence: None)
  Receive Date: 20040415
  Receipt Date: 20040402
  Transmission Date: 20050107
  Serious: Yes (Hospitalization)
  Sender: FDA-Public Use
  Company Number: SE-GLAXOSMITHKLINE-B0329046A

PATIENT
  Age: 55 Year
  Sex: Female

DRUGS (3)
  1. SPEKTRAMOX [Suspect]
     Indication: OTITIS MEDIA ACUTE
     Route: 048
     Dates: start: 20040305, end: 20040306
  2. SANDIMMUNE [Concomitant]
     Indication: PSORIASIS
     Dates: end: 20040201
  3. CIPROXIN [Concomitant]
     Indication: PYELONEPHRITIS
     Dates: start: 20040222

REACTIONS (6)
  - ERYTHEMA [None]
  - HEART RATE INCREASED [None]
  - JOINT SWELLING [None]
  - OEDEMA PERIPHERAL [None]
  - PAIN [None]
  - PYREXIA [None]
